FAERS Safety Report 11917470 (Version 1)
Quarter: 2016Q1

REPORT INFORMATION
  Report Type: Spontaneous
  Country: US (occurrence: US)
  Receive Date: 20160114
  Receipt Date: 20160114
  Transmission Date: 20160526
  Serious: No
  Sender: FDA-Public Use
  Company Number: US-MEDA-2015030031

PATIENT
  Age: 56 Year
  Sex: Male
  Weight: 91 kg

DRUGS (5)
  1. MUSE [Suspect]
     Active Substance: ALPROSTADIL
     Indication: ERECTILE DYSFUNCTION
     Route: 066
     Dates: start: 20150312
  2. VIAGRA [Concomitant]
     Active Substance: SILDENAFIL CITRATE
  3. LOVASTATIN. [Concomitant]
     Active Substance: LOVASTATIN
     Indication: BLOOD CHOLESTEROL INCREASED
     Route: 048
     Dates: start: 2007
  4. LEVITRA [Concomitant]
     Active Substance: VARDENAFIL HYDROCHLORIDE TRIHYDRATE
  5. CIALIS [Concomitant]
     Active Substance: TADALAFIL

REACTIONS (4)
  - Penile burning sensation [Recovered/Resolved]
  - Wrong technique in product usage process [Recovered/Resolved]
  - Penile pain [Recovered/Resolved]
  - Drug ineffective [Unknown]

NARRATIVE: CASE EVENT DATE: 20150312
